FAERS Safety Report 25811464 (Version 1)
Quarter: 2025Q3

REPORT INFORMATION
  Report Type: Spontaneous
  Country: US (occurrence: US)
  Receive Date: 20250917
  Receipt Date: 20250917
  Transmission Date: 20251021
  Serious: Yes (Other)
  Sender: BAUSCH AND LOMB
  Company Number: US-BAUSCHBL-2024BNL030659

PATIENT
  Age: 84 Year
  Sex: Male
  Weight: 74 kg

DRUGS (10)
  1. MURO 128 [Suspect]
     Active Substance: SODIUM CHLORIDE
     Indication: Corneal scar
     Route: 047
     Dates: start: 2023, end: 2023
  2. MURO 128 [Suspect]
     Active Substance: SODIUM CHLORIDE
     Indication: Eye operation
     Route: 047
     Dates: start: 202407
  3. MURO 128 [Suspect]
     Active Substance: SODIUM CHLORIDE
     Indication: Product use in unapproved indication
     Route: 047
     Dates: start: 202405, end: 202406
  4. MURO 128 [Suspect]
     Active Substance: SODIUM CHLORIDE
     Indication: Superficial injury of eye
  5. ELIQUIS [Concomitant]
     Active Substance: APIXABAN
     Indication: Product used for unknown indication
     Route: 065
  6. ASPIRIN [Concomitant]
     Active Substance: ASPIRIN
     Indication: Product used for unknown indication
     Route: 065
  7. CARVEDILOL [Concomitant]
     Active Substance: CARVEDILOL
     Indication: Product used for unknown indication
     Route: 065
  8. MICARDIS [Concomitant]
     Active Substance: TELMISARTAN
     Indication: Product used for unknown indication
     Route: 065
  9. RESTASIS [Concomitant]
     Active Substance: CYCLOSPORINE
     Indication: Product used for unknown indication
     Route: 065
  10. GENTEAL MILD [Concomitant]
     Active Substance: HYPROMELLOSE 2910 (4000 MPA.S)
     Indication: Product used for unknown indication
     Route: 065

REACTIONS (9)
  - Cataract operation [Unknown]
  - Visual impairment [Unknown]
  - Eye swelling [Unknown]
  - Burning sensation [Recovered/Resolved]
  - Vision blurred [Recovered/Resolved]
  - Lacrimation increased [Unknown]
  - Hypopigmentation of eyelid [Unknown]
  - Corneal scar [Unknown]
  - Product use in unapproved indication [Unknown]

NARRATIVE: CASE EVENT DATE: 20240101
